FAERS Safety Report 13897190 (Version 1)
Quarter: 2017Q3

REPORT INFORMATION
  Report Type: Spontaneous
  Country: US (occurrence: US)
  Receive Date: 20170823
  Receipt Date: 20170823
  Transmission Date: 20171127
  Serious: Yes (Death, Hospitalization, Other)
  Sender: FDA-Public Use
  Company Number: US-GLAXOSMITHKLINE-US2017129769

PATIENT
  Age: 93 Year
  Sex: Female

DRUGS (2)
  1. ALBUTEROL. [Suspect]
     Active Substance: ALBUTEROL
     Indication: PRODUCT USED FOR UNKNOWN INDICATION
  2. FLOVENT [Suspect]
     Active Substance: FLUTICASONE PROPIONATE
     Indication: ASTHMA
     Dosage: UNK
     Route: 055
     Dates: end: 2014

REACTIONS (16)
  - Blood urine present [Unknown]
  - Frequent bowel movements [Unknown]
  - Death [Fatal]
  - Device related infection [Unknown]
  - Seizure [Unknown]
  - Cardiac failure congestive [Unknown]
  - Weight decreased [Unknown]
  - Intestinal obstruction [Unknown]
  - Dehydration [Unknown]
  - Central venous catheterisation [Unknown]
  - Dysphonia [Unknown]
  - Pain [Unknown]
  - Weight increased [Unknown]
  - Vertebroplasty [Unknown]
  - Spinal fracture [Unknown]
  - Anaemia [Unknown]

NARRATIVE: CASE EVENT DATE: 2010
